FAERS Safety Report 6798095-3 (Version None)
Quarter: 2010Q2

REPORT INFORMATION
  Report Type: 
  Country: None (occurrence: None)
  Receive Date: 20100623
  Receipt Date: 20100615
  Transmission Date: 20101027
  Serious: Yes (Death, Hospitalization)
  Sender: FDA-Public Use
  Company Number: 2010US002186

PATIENT
  Age: 64 Year
  Sex: Male

DRUGS (4)
  1. PROGRAF [Suspect]
     Indication: LUNG TRANSPLANT
     Dates: start: 20040101
  2. DACLIZUMAB (DACLIZUMAB) [Suspect]
     Indication: LUNG TRANSPLANT
     Dosage: 1 MG/KG, EVERY 2 WEEKS, UNKNOWN
     Dates: start: 20040101
  3. AZATHIOPRINE [Suspect]
     Indication: LUNG TRANSPLANT
     Dosage: 2 MG/KG, UID/QD, UNKNOWN
     Dates: start: 20040101
  4. PREDNISONE TAB [Suspect]
     Indication: LUNG TRANSPLANT
     Dosage: 10 MG, UID/QD, UNKNOWN
     Dates: start: 20040101

REACTIONS (8)
  - CACHEXIA [None]
  - COLITIS ISCHAEMIC [None]
  - LARGE INTESTINE PERFORATION [None]
  - METASTASES TO LIVER [None]
  - METASTATIC MALIGNANT MELANOMA [None]
  - NEOPLASM RECURRENCE [None]
  - OFF LABEL USE [None]
  - PNEUMONIA [None]
